FAERS Safety Report 7027409-4 (Version None)
Quarter: 2010Q4

REPORT INFORMATION
  Report Type: 
  Country: None (occurrence: None)
  Receive Date: 20101004
  Receipt Date: 20100929
  Transmission Date: 20110411
  Serious: Yes (Other)
  Sender: FDA-Public Use
  Company Number: US-PURDUE-USA-2010-0047734

PATIENT
  Sex: Female

DRUGS (1)
  1. MS CONTIN [Suspect]
     Indication: PAIN
     Dosage: 1 TABLET, BID
     Route: 048
     Dates: start: 20100301

REACTIONS (3)
  - PAIN [None]
  - SUICIDAL IDEATION [None]
  - WEIGHT INCREASED [None]
